FAERS Safety Report 25856965 (Version 2)
Quarter: 2025Q4

REPORT INFORMATION
  Report Type: Spontaneous
  Country: EU (occurrence: EU)
  Receive Date: 20250929
  Receipt Date: 20251005
  Transmission Date: 20260118
  Serious: Yes (Hospitalization, Other)
  Sender: BIOGEN
  Company Number: EU-BIOGEN-2025BI01325111

PATIENT
  Sex: Female

DRUGS (6)
  1. SPINRAZA [Suspect]
     Active Substance: NUSINERSEN
     Indication: Spinal muscular atrophy
     Dosage: 24TH DOSE IN END OF AUG 2025.
     Route: 050
     Dates: start: 20181026
  2. VITAMIN D3 [Concomitant]
     Active Substance: CHOLECALCIFEROL
     Indication: Product used for unknown indication
     Route: 050
  3. VITAMIN C [Concomitant]
     Active Substance: ASCORBIC ACID
     Indication: Product used for unknown indication
     Route: 050
  4. LEVOCARNITINE [Concomitant]
     Active Substance: LEVOCARNITINE
     Indication: Product used for unknown indication
     Route: 050
  5. Glutamin [Concomitant]
     Indication: Product used for unknown indication
     Route: 050
  6. Fosfotreonina [Concomitant]
     Indication: Product used for unknown indication
     Route: 050

REACTIONS (4)
  - Abdominal pain [Recovered/Resolved]
  - Motor dysfunction [Not Recovered/Not Resolved]
  - Incorrect route of product administration [Not Recovered/Not Resolved]
  - Post lumbar puncture syndrome [Recovered/Resolved]

NARRATIVE: CASE EVENT DATE: 20180101
